FAERS Safety Report 13752422 (Version 2)
Quarter: 2017Q3

REPORT INFORMATION
  Report Type: Spontaneous
  Country: US (occurrence: US)
  Receive Date: 20170713
  Receipt Date: 20170801
  Transmission Date: 20171127
  Serious: No
  Sender: FDA-Public Use
  Company Number: US-JAZZ-2017-US-006770

PATIENT
  Age: 30 Year
  Sex: Female
  Weight: 65.76 kg

DRUGS (5)
  1. XYREM [Suspect]
     Active Substance: SODIUM OXYBATE
     Dosage: 2.25G, BID
     Route: 048
     Dates: start: 20170605
  2. XYREM [Suspect]
     Active Substance: SODIUM OXYBATE
     Indication: NARCOLEPSY
     Dosage: 3G, BID
     Route: 048
     Dates: start: 20170604, end: 20170605
  3. XYREM [Suspect]
     Active Substance: SODIUM OXYBATE
     Indication: SOMNOLENCE
     Dosage: 2.25G, BID
     Route: 048
     Dates: start: 20170522, end: 2017
  4. VALTREX [Concomitant]
     Active Substance: VALACYCLOVIR HYDROCHLORIDE
     Indication: HERPES SIMPLEX
  5. LORATADINE 1A PHARMA [Concomitant]
     Indication: HYPERSENSITIVITY

REACTIONS (14)
  - Condition aggravated [Unknown]
  - Paraesthesia [Unknown]
  - Sluggishness [Unknown]
  - Abdominal distension [Unknown]
  - Dyspepsia [Unknown]
  - Ageusia [Unknown]
  - Dehydration [Unknown]
  - Dry mouth [Unknown]
  - Headache [Unknown]
  - Feeling abnormal [Unknown]
  - Confusional state [Unknown]
  - Alopecia [Unknown]
  - Dizziness [Unknown]
  - Somnolence [Unknown]

NARRATIVE: CASE EVENT DATE: 2017
